FAERS Safety Report 5019667-2 (Version None)
Quarter: 2006Q2

REPORT INFORMATION
  Report Type: 
  Country: None (occurrence: None)
  Receive Date: 20060601
  Receipt Date: 20060428
  Transmission Date: 20061013
  Serious: Yes (Hospitalization, Other)
  Sender: FDA-Public Use
  Company Number: 2006058763

PATIENT
  Age: 62 Year
  Sex: Male

DRUGS (1)
  1. CELEBREX [Suspect]
     Indication: ARTHRITIS
     Dosage: 200 MG (200 MG, 1 IN 1 D), UNKNOWN
     Route: 065
     Dates: start: 20011001

REACTIONS (8)
  - ARRHYTHMIA [None]
  - ARTHRITIS [None]
  - CHEST PAIN [None]
  - CORONARY ARTERY DISEASE [None]
  - KNEE OPERATION [None]
  - LIMB OPERATION [None]
  - SHOULDER OPERATION [None]
  - STENT PLACEMENT [None]
